FAERS Safety Report 20572618 (Version 1)
Quarter: 2022Q1

REPORT INFORMATION
  Report Type: Spontaneous
  Country: US (occurrence: None)
  Receive Date: 20220308
  Receipt Date: 20220308
  Transmission Date: 20220423
  Serious: No
  Sender: FDA-Public Use
  Company Number: None

PATIENT
  Age: 49 Year
  Sex: Female
  Weight: 75.6 kg

DRUGS (6)
  1. CAPECITABINE [Suspect]
     Active Substance: CAPECITABINE
     Indication: Breast cancer
     Dosage: OTHER FREQUENCY : AM2GMPMX14/21DAYS;?
     Route: 048
     Dates: start: 20220122
  2. HEPARIN [Concomitant]
     Active Substance: HEPARIN SODIUM
  3. Lidocaine-Prilocaine cream [Concomitant]
  4. Bupropion ER 300mg [Concomitant]
  5. Excedrin 250-250-65mg [Concomitant]
  6. Flonase 50mcg/act [Concomitant]

REACTIONS (1)
  - Blister [None]

NARRATIVE: CASE EVENT DATE: 20220307
